FAERS Safety Report 12919574 (Version 2)
Quarter: 2016Q4

REPORT INFORMATION
  Report Type: Spontaneous
  Country: JP (occurrence: JP)
  Receive Date: 20161108
  Receipt Date: 20161128
  Transmission Date: 20170207
  Serious: Yes (Death)
  Sender: FDA-Public Use
  Company Number: JP-ROCHE-1851945

PATIENT
  Age: 57 Year
  Sex: Male
  Weight: 73 kg

DRUGS (11)
  1. ONEALFA [Concomitant]
     Active Substance: ALFACALCIDOL
     Indication: PROPHYLAXIS
     Route: 048
  2. ARAVA [Suspect]
     Active Substance: LEFLUNOMIDE
     Indication: RHEUMATOID ARTHRITIS
     Route: 065
     Dates: end: 201609
  3. PREMINENT [Concomitant]
     Active Substance: HYDROCHLOROTHIAZIDE\LOSARTAN POTASSIUM
     Indication: HYPERTENSION
     Route: 048
  4. ACTEMRA [Suspect]
     Active Substance: TOCILIZUMAB
     Indication: RHEUMATOID ARTHRITIS
     Dosage: SELF ADMINISTRATION
     Route: 058
     Dates: start: 2010, end: 20160908
  5. TRICOR (JAPAN) [Concomitant]
     Indication: PROPHYLAXIS
     Route: 048
  6. INFLIXIMAB [Concomitant]
     Active Substance: INFLIXIMAB
     Indication: RHEUMATOID ARTHRITIS
     Dosage: GENETICAL RECOMBINATION
     Route: 065
     Dates: start: 20070207, end: 201005
  7. PREDNISOLONE. [Suspect]
     Active Substance: PREDNISOLONE
     Indication: RHEUMATOID ARTHRITIS
     Route: 065
     Dates: start: 20051024
  8. BUCILLAMINE [Concomitant]
     Active Substance: BUCILLAMINE
     Indication: RHEUMATOID ARTHRITIS
     Route: 065
     Dates: end: 201609
  9. TAKEPRON [Concomitant]
     Active Substance: LANSOPRAZOLE
     Indication: PROPHYLAXIS
     Route: 048
  10. LIXIANA [Concomitant]
     Active Substance: EDOXABAN TOSILATE MONOHYDRATE
     Indication: ARRHYTHMIA
     Route: 048
  11. SOLU-MEDROL [Concomitant]
     Active Substance: METHYLPREDNISOLONE SODIUM SUCCINATE
     Route: 065
     Dates: start: 20160829

REACTIONS (4)
  - Bacteraemia [Fatal]
  - Muscle abscess [Fatal]
  - Disseminated intravascular coagulation [Fatal]
  - Endocarditis [Fatal]

NARRATIVE: CASE EVENT DATE: 20160909
